FAERS Safety Report 15703741 (Version 1)
Quarter: 2018Q4

REPORT INFORMATION
  Report Type: Spontaneous
  Country: NO (occurrence: NO)
  Receive Date: 20181210
  Receipt Date: 20181210
  Transmission Date: 20190205
  Serious: Yes (Hospitalization, Other)
  Sender: FDA-Public Use
  Company Number: NO-GLAXOSMITHKLINE-NO2018220668

PATIENT
  Sex: Male

DRUGS (1)
  1. VOLTAREN [Suspect]
     Active Substance: DICLOFENAC SODIUM
     Indication: PRODUCT USED FOR UNKNOWN INDICATION
     Dosage: UNK
     Route: 065

REACTIONS (12)
  - Gastrointestinal disorder [Unknown]
  - Foot deformity [Unknown]
  - Gastric ulcer haemorrhage [Unknown]
  - Nerve injury [Unknown]
  - Rash vesicular [Unknown]
  - Ill-defined disorder [Unknown]
  - C-reactive protein increased [Unknown]
  - Epilepsy [Unknown]
  - Gangrene [Unknown]
  - Wound [Unknown]
  - Nephrolithiasis [Unknown]
  - Neuralgia [Unknown]

NARRATIVE: CASE EVENT DATE: 20180806
